FAERS Safety Report 17348855 (Version 1)
Quarter: 2020Q1

REPORT INFORMATION
  Report Type: Report from Study
  Country: US (occurrence: US)
  Receive Date: 20200129
  Receipt Date: 20200129
  Transmission Date: 20200409
  Serious: No
  Sender: FDA-Public Use
  Company Number: US-EXELIXIS-CABO-19024682

PATIENT
  Sex: Female

DRUGS (2)
  1. CABOMETYX [Suspect]
     Active Substance: CABOZANTINIB S-MALATE
     Indication: ADRENAL GLAND CANCER
     Dosage: 40 MG, QD (IN THE MORNING, WITHOUT FOOD)
     Dates: start: 20190925
  2. CABOMETYX [Suspect]
     Active Substance: CABOZANTINIB S-MALATE
     Dosage: 60 MG, QD (IN THE MORNING, WITHOUT FOOD)
     Dates: start: 20191026

REACTIONS (14)
  - Chest discomfort [Unknown]
  - Blister [Recovering/Resolving]
  - Urinary tract infection [Unknown]
  - Constipation [Unknown]
  - Fatigue [Unknown]
  - Glossodynia [Recovered/Resolved]
  - Pruritus [Unknown]
  - Back pain [Unknown]
  - Flatulence [Recovering/Resolving]
  - Off label use [Unknown]
  - Injury [Unknown]
  - Dyspnoea [Unknown]
  - Blood pressure increased [Recovered/Resolved]
  - Abdominal pain upper [Recovering/Resolving]
